FAERS Safety Report 9706643 (Version 2)
Quarter: 2013Q4

REPORT INFORMATION
  Report Type: Report from Study
  Country: HU (occurrence: HU)
  Receive Date: 20131125
  Receipt Date: 20131125
  Transmission Date: 20140711
  Serious: Yes (Other)
  Sender: FDA-Public Use
  Company Number: HU-ROCHE-1229881

PATIENT
  Age: 63 Year
  Sex: Female
  Weight: 47 kg

DRUGS (24)
  1. OBINUTUZUMAB [Suspect]
     Indication: DIFFUSE LARGE B-CELL LYMPHOMA
     Dosage: 4 MG/ML, VOLUME OF LAST OBINUTUZUMAB TAKEN: 250 ML, DATE OF MOST RECENT DOSE OF OBINUTUZUMAB : 10/OC
     Route: 042
     Dates: start: 20120514
  2. CYCLOPHOSPHAMIDE [Suspect]
     Indication: DIFFUSE LARGE B-CELL LYMPHOMA
     Dosage: DATE OF MOST RECENT DOSE PRIOR TO SAE: 10/OCT/2012, LAST DOSE 1072 MG
     Route: 042
     Dates: start: 20120514
  3. DOXORUBICIN [Suspect]
     Indication: DIFFUSE LARGE B-CELL LYMPHOMA
     Dosage: DATE OF MOST RECENT DOSE PRIOR TO SAE: 10/OCT/2012, LAST DOSE 70 MG
     Route: 042
     Dates: start: 20120514
  4. VINCRISTINE [Suspect]
     Indication: DIFFUSE LARGE B-CELL LYMPHOMA
     Dosage: DATE OF MOST RECENT DOSE PRIOR TO SAE: 10/OCT/2012, LAST DOSE 2 MG
     Route: 050
     Dates: start: 20120514
  5. PREDNISONE [Suspect]
     Indication: DIFFUSE LARGE B-CELL LYMPHOMA
     Dosage: DATE OF MOST RECENT DOSE PRIOR TO SAE: 15/OCT/2012, LAST DOSE 100 MG
     Route: 048
     Dates: start: 20120514
  6. CLOPIDOGREL [Concomitant]
     Indication: ARTERIOSCLEROSIS
  7. PRENESSA [Concomitant]
     Indication: HYPERTENSION
  8. BETALOC [Concomitant]
     Indication: HYPERTENSION
  9. NORMAFLORE (HUNGARY) [Concomitant]
     Indication: DYSBACTERIOSIS
  10. IMODIUM [Concomitant]
     Indication: POST GASTRIC SURGERY SYNDROME
  11. MILURIT [Concomitant]
     Indication: HYPERURICAEMIA
  12. MEGESIN [Concomitant]
     Indication: DECREASED APPETITE
     Route: 065
     Dates: start: 20121114
  13. SPIRIVA HANDIHALER [Concomitant]
     Indication: CHRONIC OBSTRUCTIVE PULMONARY DISEASE
     Route: 065
     Dates: start: 20121221
  14. ONBREZ BREEZHALER [Concomitant]
     Indication: CHRONIC OBSTRUCTIVE PULMONARY DISEASE
     Route: 065
     Dates: start: 20121221
  15. BERODUAL AEROSOL [Concomitant]
     Indication: CHRONIC OBSTRUCTIVE PULMONARY DISEASE
     Route: 065
     Dates: start: 20121221
  16. ENTEROBENE [Concomitant]
     Indication: DIARRHOEA
     Route: 065
     Dates: start: 20130124
  17. RIFAMED [Concomitant]
     Indication: TUBERCULOSIS
     Route: 065
     Dates: start: 20130124
  18. IZONIAZID [Concomitant]
     Indication: TUBERCULOSIS
     Route: 065
     Dates: start: 20130124
  19. PYRAZINAMID [Concomitant]
     Indication: TUBERCULOSIS
     Route: 065
     Dates: start: 20130124
  20. SURAL [Concomitant]
     Indication: TUBERCULOSIS
     Route: 065
     Dates: start: 20130124
  21. KALDYUM [Concomitant]
     Indication: HYPOKALAEMIA
     Route: 065
     Dates: start: 20130312
  22. MILGAMMA N (HUNGARY) [Concomitant]
     Indication: NEURALGIA
     Route: 065
     Dates: start: 20121114
  23. DICLOFENAC POTASSIUM/DICLOFENAC RESINATE/DICLOFENAC SODIUM [Concomitant]
     Indication: BONE PAIN
     Route: 065
     Dates: start: 20130124
  24. AMLOPIN [Concomitant]
     Indication: HYPERTENSION

REACTIONS (1)
  - Lung adenocarcinoma [Unknown]
